FAERS Safety Report 7904693-3 (Version None)
Quarter: 2011Q4

REPORT INFORMATION
  Report Type: 
  Country: None (occurrence: None)
  Receive Date: 20111109
  Receipt Date: 20111024
  Transmission Date: 20120403
  Serious: Yes (Hospitalization, Other)
  Sender: FDA-Public Use
  Company Number: JP-GLAXOSMITHKLINE-B0758889A

PATIENT
  Age: 50 Year
  Sex: Male

DRUGS (2)
  1. ZOVIRAX [Suspect]
     Indication: PRODUCT USED FOR UNKNOWN INDICATION
     Route: 042
     Dates: start: 20110420, end: 20110422
  2. VALTREX [Suspect]
     Indication: HERPES ZOSTER
     Dosage: 500MG PER DAY
     Route: 048
     Dates: start: 20110418, end: 20110418

REACTIONS (4)
  - ENCEPHALOPATHY [None]
  - ENCEPHALITIS [None]
  - ALTERED STATE OF CONSCIOUSNESS [None]
  - DYSARTHRIA [None]
